FAERS Safety Report 4487636-7 (Version None)
Quarter: 2004Q4

REPORT INFORMATION
  Report Type: 
  Country: None (occurrence: None)
  Receive Date: 20041025
  Receipt Date: 20041011
  Transmission Date: 20050328
  Serious: Yes (Other)
  Sender: FDA-Public Use
  Company Number: 2004076877

PATIENT
  Age: 79 Year
  Sex: Female
  Weight: 72.5755 kg

DRUGS (4)
  1. LIPITOR [Suspect]
     Indication: BLOOD CHOLESTEROL
     Dosage: (1 IN 1 D), ORAL
     Route: 048
  2. CELECOXIB (CELECOXIB) [Suspect]
     Indication: OSTEOARTHRITIS
     Dosage: 200 MG (200 MG, 1 IN 1 D), ORAL
     Route: 048
  3. NICOTINIC ACID [Suspect]
     Indication: BLOOD CHOLESTEROL
     Dosage: ORAL
     Route: 048
  4. ALENDRONATE SODIUM [Concomitant]

REACTIONS (14)
  - ARTHROPATHY [None]
  - BACK PAIN [None]
  - BODY HEIGHT DECREASED [None]
  - DRUG INEFFECTIVE [None]
  - FALL [None]
  - HOT FLUSH [None]
  - HYPOAESTHESIA [None]
  - LIVER DISORDER [None]
  - MASS [None]
  - OSTEOARTHRITIS [None]
  - PAIN IN EXTREMITY [None]
  - PRURITUS [None]
  - SURGERY [None]
  - WEIGHT DECREASED [None]
